FAERS Safety Report 13018962 (Version 2)
Quarter: 2018Q1

REPORT INFORMATION
  Report Type: Spontaneous
  Country: US (occurrence: US)
  Receive Date: 20161212
  Receipt Date: 20180305
  Transmission Date: 20180508
  Serious: Yes (Hospitalization)
  Sender: FDA-Public Use
  Company Number: US-PFIZER INC-2016564176

PATIENT
  Age: 50 Year
  Sex: Female
  Weight: 47.63 kg

DRUGS (3)
  1. IBUPROFEN. [Concomitant]
     Active Substance: IBUPROFEN
     Indication: PAIN
     Dosage: 600 MG, UNK
  2. LYRICA [Suspect]
     Active Substance: PREGABALIN
     Indication: SPINAL CORD INJURY
     Dosage: 350 MG, 2X/DAY (ONE CAPSULE IN THE MORNING AND ONE CAPSULE AT NIGHT)
     Route: 048
  3. LYRICA [Suspect]
     Active Substance: PREGABALIN
     Indication: MUSCULOSKELETAL DISORDER
     Dosage: 300 MG, 2X/DAY
     Route: 048

REACTIONS (10)
  - Weight decreased [Unknown]
  - Pyrexia [Unknown]
  - Influenza [Not Recovered/Not Resolved]
  - Drug dose omission [Unknown]
  - Body height decreased [Unknown]
  - Overdose [Unknown]
  - Intentional product misuse [Unknown]
  - Cough [Not Recovered/Not Resolved]
  - Pneumonia [Not Recovered/Not Resolved]
  - Productive cough [Unknown]

NARRATIVE: CASE EVENT DATE: 201611
